FAERS Safety Report 11131344 (Version 1)
Quarter: 2015Q2

REPORT INFORMATION
  Report Type: Spontaneous
  Country: US (occurrence: None)
  Receive Date: 20150521
  Receipt Date: 20150521
  Transmission Date: 20150821
  Serious: Yes (Disabling, Other)
  Sender: FDA-Public Use
  Company Number: None

PATIENT
  Age: 44 Year
  Sex: Female
  Weight: 71.22 kg

DRUGS (6)
  1. BENADRYL [Concomitant]
     Active Substance: DIPHENHYDRAMINE HYDROCHLORIDE
  2. TYLENOL [Suspect]
     Active Substance: ACETAMINOPHEN
  3. LEVOTHYROXINE [Concomitant]
     Active Substance: LEVOTHYROXINE
  4. MAGNESIUM [Suspect]
     Active Substance: MAGNESIUM
  5. VITAMIN B12 [Suspect]
     Active Substance: CYANOCOBALAMIN
  6. CIPRO [Suspect]
     Active Substance: CIPROFLOXACIN HYDROCHLORIDE
     Indication: DIVERTICULITIS
     Route: 048
     Dates: start: 20150119, end: 20150122

REACTIONS (20)
  - Nervous system disorder [None]
  - Paraesthesia [None]
  - Feeling abnormal [None]
  - Dyspnoea [None]
  - Arthralgia [None]
  - Fatigue [None]
  - Hypoaesthesia [None]
  - Dysphagia [None]
  - Insomnia [None]
  - Impaired driving ability [None]
  - Toxicity to various agents [None]
  - Dizziness [None]
  - Gastrointestinal disorder [None]
  - Anxiety [None]
  - Amnesia [None]
  - Tachycardia [None]
  - Gait disturbance [None]
  - Asthenia [None]
  - Cognitive disorder [None]
  - Speech disorder [None]

NARRATIVE: CASE EVENT DATE: 20150120
